FAERS Safety Report 6193801-3 (Version None)
Quarter: 2009Q2

REPORT INFORMATION
  Report Type: 
  Country: None (occurrence: None)
  Receive Date: 20090513
  Receipt Date: 20090506
  Transmission Date: 20091009
  Serious: Yes (Hospitalization)
  Sender: FDA-Public Use
  Company Number: WAES 0905GBR00007

PATIENT
  Age: 66 Year
  Sex: Female

DRUGS (17)
  1. COZAAR [Suspect]
     Indication: CARDIAC FAILURE CONGESTIVE
     Dosage: PO
     Route: 048
     Dates: end: 20050124
  2. ACETAMINOPHEN [Concomitant]
  3. AMOXICILLIN [Concomitant]
  4. ASPIRIN [Concomitant]
  5. BISOPROLOL [Concomitant]
  6. BUMETANIDE [Concomitant]
  7. CLARITHROMYCIN [Concomitant]
  8. FELODIPINE [Concomitant]
  9. FERROUSSO4 [Concomitant]
  10. FOLIC ACID [Concomitant]
  11. HYDROXOCOBALAMIN [Concomitant]
  12. INSULIN [Concomitant]
  13. LEVOTHYROXINE SODIUM [Concomitant]
  14. NITROGLYCERIN [Concomitant]
  15. OMEPRAZOLE [Concomitant]
  16. PRAVASTATIN SODIUM [Concomitant]
  17. PROCHLORPERAZINE [Concomitant]

REACTIONS (2)
  - DEEP VEIN THROMBOSIS [None]
  - LOWER RESPIRATORY TRACT INFECTION [None]
